FAERS Safety Report 14189420 (Version 1)
Quarter: 2017Q4

REPORT INFORMATION
  Report Type: Spontaneous
  Country: CH (occurrence: CH)
  Receive Date: 20171115
  Receipt Date: 20171115
  Transmission Date: 20180321
  Serious: Yes (Other)
  Sender: FDA-Public Use
  Company Number: CH-SUN PHARMACEUTICAL INDUSTRIES LTD-2017R1-144885

PATIENT
  Age: 24 Year
  Sex: Male

DRUGS (2)
  1. PHENOPROCUMON [Suspect]
     Active Substance: PHENPROCOUMON
     Indication: ANTICOAGULANT THERAPY
     Route: 065
  2. PREDNISONE. [Suspect]
     Active Substance: PREDNISONE
     Indication: IMMUNOSUPPRESSANT DRUG THERAPY
     Route: 065

REACTIONS (3)
  - Calciphylaxis [Unknown]
  - Erysipelas [Unknown]
  - Extremity necrosis [None]
